FAERS Safety Report 5650696-1 (Version None)
Quarter: 2008Q1

REPORT INFORMATION
  Report Type: 
  Country: None (occurrence: None)
  Receive Date: 20080305
  Receipt Date: 20080305
  Transmission Date: 20080703
  Serious: Yes (Life-Threatening, Hospitalization)
  Sender: FDA-Public Use
  Company Number: None

PATIENT
  Sex: Male
  Weight: 117.9352 kg

DRUGS (2)
  1. HEPARIN [Suspect]
     Indication: SURGERY
     Dosage: SYRINGE - BAGS
     Dates: start: 20071101, end: 20071102
  2. HEPARIN [Suspect]
     Indication: SURGERY
     Dosage: SYRINGE - BAGS
     Dates: start: 20071031

REACTIONS (8)
  - BLOOD PRESSURE DECREASED [None]
  - BLOOD PRESSURE IMMEASURABLE [None]
  - BLOOD PRESSURE INADEQUATELY CONTROLLED [None]
  - HAEMORRHAGE [None]
  - HEPARIN-INDUCED THROMBOCYTOPENIA [None]
  - LOSS OF CONSCIOUSNESS [None]
  - PULSE ABSENT [None]
  - RENAL FAILURE ACUTE [None]
